FAERS Safety Report 16752364 (Version 1)
Quarter: 2019Q3

REPORT INFORMATION
  Report Type: Spontaneous
  Country: CH (occurrence: CH)
  Receive Date: 20190828
  Receipt Date: 20190828
  Transmission Date: 20191005
  Serious: Yes (Other)
  Sender: FDA-Public Use
  Company Number: CH-BAUSCH-BL-2019-023391

PATIENT
  Age: 68 Year
  Sex: Female

DRUGS (7)
  1. DEXAMETHASONE. [Suspect]
     Active Substance: DEXAMETHASONE
     Dosage: WITH LENALIDOMIDE
     Route: 065
     Dates: start: 201710, end: 201711
  2. LENALIDOMIDE [Suspect]
     Active Substance: LENALIDOMIDE
     Indication: AMYLOIDOSIS
     Dosage: LOW-DOSE
     Route: 065
     Dates: start: 201710, end: 201711
  3. CYCLOPHOSPHAMIDE. [Suspect]
     Active Substance: CYCLOPHOSPHAMIDE
     Indication: AMYLOIDOSIS
     Dosage: WITH DEXAMETHASONE AND BORTEZOMIB
     Route: 065
     Dates: start: 201702, end: 201706
  4. MELPHALAN. [Suspect]
     Active Substance: MELPHALAN
     Indication: AMYLOIDOSIS
     Route: 048
     Dates: start: 201706, end: 201710
  5. DEXAMETHASONE. [Suspect]
     Active Substance: DEXAMETHASONE
     Indication: AMYLOIDOSIS
     Dosage: WITH BORTEZOMIB AND CYCLOPHOSPHAMIDE
     Route: 065
     Dates: start: 201702, end: 201706
  6. DEXAMETHASONE. [Suspect]
     Active Substance: DEXAMETHASONE
     Dosage: WITH ORAL MELPHALAN
     Route: 065
     Dates: start: 201706, end: 201710
  7. BORTEZOMIB. [Suspect]
     Active Substance: BORTEZOMIB
     Indication: AMYLOIDOSIS
     Dosage: WITH DEXAMETHASONE AND CYCLOPHOSPHAMIDE
     Route: 065
     Dates: start: 201702, end: 201706

REACTIONS (3)
  - Amyloidosis [Recovered/Resolved]
  - Drug intolerance [Unknown]
  - Disease progression [Recovered/Resolved]

NARRATIVE: CASE EVENT DATE: 2017
